FAERS Safety Report 5988233-4 (Version None)
Quarter: 2008Q4

REPORT INFORMATION
  Report Type: 
  Country: None (occurrence: None)
  Receive Date: 20081204
  Receipt Date: 20081120
  Transmission Date: 20090506
  Serious: No
  Sender: FDA-Public Use
  Company Number: KV200800436

PATIENT
  Age: 64 Year
  Sex: Male
  Weight: 88.4 kg

DRUGS (12)
  1. ISOSORBIDE MONONITRATE [Suspect]
     Indication: HYPERTENSION
     Dosage: 60 MG, QD, ORAL
     Route: 048
     Dates: start: 19980101
  2. LOPID [Concomitant]
  3. BETAPACE [Concomitant]
  4. LOPID [Concomitant]
  5. SIMVASTATIN [Concomitant]
  6. PLAVIX [Concomitant]
  7. LISINOPRIL [Concomitant]
  8. NORVASC/00972401/(AMLODIPINE) [Concomitant]
  9. FLOMAX /00889901/(MORNIFLUMATE) [Concomitant]
  10. ASPIRIN [Concomitant]
  11. OMEGA-3 /00931501/(DOCOSAHEXANOIC ACID, EICOSAPENTAENOIC ACID) [Concomitant]
  12. COQ10 (UBIDECARENONE) [Concomitant]

REACTIONS (5)
  - DIZZINESS [None]
  - HEART RATE INCREASED [None]
  - PARAESTHESIA [None]
  - PRODUCT QUALITY ISSUE [None]
  - VISUAL IMPAIRMENT [None]
